FAERS Safety Report 4450903-7 (Version None)
Quarter: 2004Q3

REPORT INFORMATION
  Report Type: 
  Country: None (occurrence: None)
  Receive Date: 20040916
  Receipt Date: 20020102
  Transmission Date: 20050211
  Serious: Yes (Other)
  Sender: FDA-Public Use
  Company Number: US-BRISTOL-MYERS SQUIBB COMPANY-11751732

PATIENT
  Age: 46 Year
  Sex: Female

DRUGS (10)
  1. STADOL [Suspect]
     Indication: MIGRAINE
     Route: 045
     Dates: start: 19991101
  2. STADOL [Suspect]
     Indication: MIGRAINE
     Dosage: ROUTE: IM AND IV DURATION: MORE THAN 3 YEARS
     Route: 030
  3. BUTALBITAL + CAFFEINE + ACETAMINOPHEN [Concomitant]
  4. CARISOPRODOL [Concomitant]
  5. ALPRAZOLAM [Concomitant]
  6. CHLORPROMAZINE [Concomitant]
  7. AMITRIPTYLINE HCL [Concomitant]
  8. CLONAZEPAM [Concomitant]
  9. PROPOXYPHENE NAPSYLATE [Concomitant]
  10. OXYCODONE HCL + ACETAMINOPHEN [Concomitant]

REACTIONS (2)
  - DEPENDENCE [None]
  - DRUG WITHDRAWAL SYNDROME [None]
